FAERS Safety Report 12479699 (Version 2)
Quarter: 2016Q3

REPORT INFORMATION
  Report Type: Spontaneous
  Country: US (occurrence: US)
  Receive Date: 20160620
  Receipt Date: 20160815
  Transmission Date: 20161109
  Serious: No
  Sender: FDA-Public Use
  Company Number: US-ASTRAZENECA-2016SE53933

PATIENT
  Sex: Female
  Weight: 68 kg

DRUGS (1)
  1. PULMICORT FLEXHALER [Suspect]
     Active Substance: BUDESONIDE
     Indication: ASTHMA
     Dosage: 180 MCG 225 MG, 1 PUFF DAILY
     Route: 055

REACTIONS (4)
  - Tongue disorder [Not Recovered/Not Resolved]
  - Device failure [Unknown]
  - Off label use [Unknown]
  - Hyposmia [Not Recovered/Not Resolved]
